FAERS Safety Report 10557929 (Version 1)
Quarter: 2014Q4

REPORT INFORMATION
  Report Type: Spontaneous
  Country: CO (occurrence: CO)
  Receive Date: 20141031
  Receipt Date: 20141031
  Transmission Date: 20150529
  Serious: Yes (Hospitalization)
  Sender: FDA-Public Use
  Company Number: CO-UCBSA-2014016186

PATIENT
  Age: 21 Year
  Sex: Female

DRUGS (11)
  1. CIMZIA [Suspect]
     Active Substance: CERTOLIZUMAB PEGOL
     Indication: RHEUMATOID ARTHRITIS
     Dosage: 200 MG, EV 4 WEEKS
     Route: 058
     Dates: start: 20140530, end: 20140909
  2. FOLIC ACID. [Concomitant]
     Active Substance: FOLIC ACID
     Indication: PRODUCT USED FOR UNKNOWN INDICATION
     Dosage: 1 MG, ONCE DAILY (QD)
  3. CIPROFLOXACIN. [Concomitant]
     Active Substance: CIPROFLOXACIN
     Indication: URINE ABNORMALITY
  4. CIPROFLOXACIN. [Concomitant]
     Active Substance: CIPROFLOXACIN
     Indication: ABDOMINAL PAIN
     Dosage: 500 MG
     Dates: start: 20140929, end: 20141002
  5. FLAVOXATE [Concomitant]
     Active Substance: FLAVOXATE
     Indication: ABDOMINAL PAIN
     Dosage: 20 MG
     Dates: start: 20141002
  6. CIMZIA [Suspect]
     Active Substance: CERTOLIZUMAB PEGOL
     Dosage: 200 MG, EV 4 WEEKS
     Route: 058
     Dates: start: 20141017
  7. MEDROL [Concomitant]
     Active Substance: METHYLPREDNISOLONE
     Indication: PRODUCT USED FOR UNKNOWN INDICATION
     Dosage: 4 MG, ONCE DAILY (QD)
  8. CEFUROXIME. [Concomitant]
     Active Substance: CEFUROXIME
     Indication: ABDOMINAL PAIN
     Dosage: 500 MG
     Dates: start: 20141002
  9. METHOTREXATE [Concomitant]
     Active Substance: METHOTREXATE
     Indication: PRODUCT USED FOR UNKNOWN INDICATION
     Dosage: 30 MG, 3X/WEEK
     Dates: start: 20140310
  10. FLAVOXATE [Concomitant]
     Active Substance: FLAVOXATE
     Indication: URINE ABNORMALITY
  11. CEFUROXIME. [Concomitant]
     Active Substance: CEFUROXIME
     Indication: URINE ABNORMALITY

REACTIONS (3)
  - Vaginal infection [Unknown]
  - Abdominal pain [Recovered/Resolved]
  - Urinary tract infection [Recovered/Resolved]

NARRATIVE: CASE EVENT DATE: 20140926
